FAERS Safety Report 4674963-3 (Version None)
Quarter: 2005Q2

REPORT INFORMATION
  Report Type: 
  Country: None (occurrence: None)
  Receive Date: 20050525
  Receipt Date: 20050525
  Transmission Date: 20051028
  Serious: Yes (Hospitalization)
  Sender: FDA-Public Use
  Company Number: None

PATIENT
  Age: 71 Year
  Sex: Female

DRUGS (2)
  1. CARBOPLATIN [Suspect]
     Indication: SMALL CELL LUNG CANCER STAGE UNSPECIFIED
     Dosage: AUC 5   Q 3 WEEKS   INTRAVENOUS
     Route: 042
     Dates: start: 20031219, end: 20040213
  2. IRINOTECAN HCL [Suspect]
     Dosage: 55 MG/M2   DAYS 1 + 8   INTRAVENOUS
     Route: 042
     Dates: start: 20031219, end: 20040213

REACTIONS (6)
  - DRUG TOXICITY [None]
  - NAUSEA [None]
  - PANCYTOPENIA [None]
  - PERFORMANCE STATUS DECREASED [None]
  - VOMITING [None]
  - WEIGHT DECREASED [None]
